FAERS Safety Report 21458316 (Version 1)
Quarter: 2022Q4

REPORT INFORMATION
  Report Type: Report from Study
  Country: CO (occurrence: CO)
  Receive Date: 20221014
  Receipt Date: 20221014
  Transmission Date: 20230112
  Serious: Yes (Hospitalization, Other)
  Sender: FDA-Public Use
  Company Number: CO-NOVARTISPH-PHHY2018CO190927

PATIENT
  Sex: Male
  Weight: 74 kg

DRUGS (4)
  1. ELTROMBOPAG OLAMINE [Suspect]
     Active Substance: ELTROMBOPAG OLAMINE
     Indication: Aplastic anaemia
     Dosage: 100 MG (TWO 50 MG TABLETS), QD
     Route: 048
  2. ELTROMBOPAG OLAMINE [Suspect]
     Active Substance: ELTROMBOPAG OLAMINE
     Dosage: 2 DOSAGE FORM, QD (100 MG)
     Route: 048
     Dates: start: 201805
  3. ELTROMBOPAG OLAMINE [Suspect]
     Active Substance: ELTROMBOPAG OLAMINE
     Dosage: 150 MG, QD
     Route: 048
  4. CYCLOSPORINE [Suspect]
     Active Substance: CYCLOSPORINE
     Indication: Product used for unknown indication
     Dosage: 2 DOSAGE FORM, QD (TWO TABLET OF 50 MG EVERY 24 HOURS)
     Route: 065

REACTIONS (5)
  - Feeling of despair [Unknown]
  - Aspergillus infection [Unknown]
  - Drug ineffective [Unknown]
  - Pneumonia fungal [Unknown]
  - Platelet count decreased [Unknown]
